FAERS Safety Report 10270211 (Version 1)
Quarter: 2014Q2

REPORT INFORMATION
  Report Type: Spontaneous
  Country: US (occurrence: None)
  Receive Date: 20140626
  Receipt Date: 20140626
  Transmission Date: 20141212
  Serious: Yes (Other)
  Sender: FDA-Public Use
  Company Number: UNT-2014-002503

PATIENT
  Sex: Female

DRUGS (1)
  1. REMODULIN (TREPROSTINIL SODIUM) INJECTION, 10MG/ML [Suspect]
     Indication: PULMONARY HYPERTENSION
     Route: 058
     Dates: start: 20130827

REACTIONS (2)
  - Lower limb fracture [None]
  - Fall [None]
